FAERS Safety Report 6536980-8 (Version None)
Quarter: 2010Q1

REPORT INFORMATION
  Report Type: 
  Country: None (occurrence: None)
  Receive Date: 20100107
  Receipt Date: 20100104
  Transmission Date: 20100710
  Serious: Yes (Other)
  Sender: FDA-Public Use
  Company Number: 2010SP000435

PATIENT
  Age: 23 Year
  Sex: Male
  Weight: 93.8946 kg

DRUGS (1)
  1. SAPHRIS [Suspect]
     Indication: MANIA
     Dosage: 5 MG;
     Dates: start: 20100102, end: 20100102

REACTIONS (3)
  - DIZZINESS [None]
  - MUSCULOSKELETAL STIFFNESS [None]
  - UNRESPONSIVE TO STIMULI [None]
